FAERS Safety Report 21633884 (Version 1)
Quarter: 2022Q4

REPORT INFORMATION
  Report Type: Spontaneous
  Country: US (occurrence: None)
  Receive Date: 20221122
  Receipt Date: 20221122
  Transmission Date: 20230113
  Serious: No
  Sender: FDA-Public Use
  Company Number: None

PATIENT
  Age: 64 Year
  Sex: Male
  Weight: 145.97 kg

DRUGS (15)
  1. INLYTA [Suspect]
     Active Substance: AXITINIB
     Indication: Renal cancer
     Dosage: OTHER FREQUENCY : Q12HOURS;?
     Route: 048
  2. ALBUATEROL [Concomitant]
  3. AMLODIPINE [Concomitant]
     Active Substance: AMLODIPINE BESYLATE
  4. DOCUSATE [Concomitant]
  5. FINASTERIDE [Concomitant]
  6. GLIMEPIRIDE [Concomitant]
     Active Substance: GLIMEPIRIDE
  7. HYDROCHLOROTHIAZIDE [Concomitant]
  8. HYDROXYZINE [Concomitant]
  9. LOSARTAN [Concomitant]
  10. METFORMIN [Concomitant]
     Active Substance: METFORMIN HYDROCHLORIDE
  11. METOPROLOL [Concomitant]
     Active Substance: METOPROLOL
  12. ROSUVASTATIN [Concomitant]
  13. TAMSULOSIN [Concomitant]
  14. TRESIBA [Concomitant]
  15. WARFARIN [Concomitant]

REACTIONS (1)
  - Pneumonitis [None]
